FAERS Safety Report 8743671 (Version 2)
Quarter: 2013Q4

REPORT INFORMATION
  Report Type: Spontaneous
  Country: US (occurrence: US)
  Receive Date: 20120824
  Receipt Date: 20131101
  Transmission Date: 20140711
  Serious: No
  Sender: FDA-Public Use
  Company Number: US-009507513-1208USA003148

PATIENT
  Sex: Female

DRUGS (1)
  1. STROMECTOL [Suspect]
     Indication: FILARIASIS
     Dosage: 3 MG, QID
     Dates: start: 20120803, end: 20120803

REACTIONS (3)
  - Headache [Not Recovered/Not Resolved]
  - Pruritus [Not Recovered/Not Resolved]
  - Inappropriate schedule of drug administration [Unknown]
